FAERS Safety Report 5600878-X (Version None)
Quarter: 2008Q1

REPORT INFORMATION
  Report Type: 
  Country: None (occurrence: None)
  Receive Date: 20080124
  Receipt Date: 20080116
  Transmission Date: 20080703
  Serious: Yes (Other)
  Sender: FDA-Public Use
  Company Number: NL-BAYER-200810940GPV

PATIENT
  Age: 67 Year
  Sex: Male

DRUGS (1)
  1. CIPROXIN [Suspect]
     Indication: DRUG USE FOR UNKNOWN INDICATION
     Dosage: UNIT DOSE: 500 MG
     Route: 048

REACTIONS (1)
  - SKIN EXFOLIATION [None]
